FAERS Safety Report 7315141-9 (Version None)
Quarter: 2011Q1

REPORT INFORMATION
  Report Type: 
  Country: None (occurrence: None)
  Receive Date: 20110225
  Receipt Date: 20110214
  Transmission Date: 20110831
  Serious: Yes (Other)
  Sender: FDA-Public Use
  Company Number: US-ROCHE-734021

PATIENT
  Sex: Female
  Weight: 68 kg

DRUGS (3)
  1. ACCUTANE [Suspect]
     Route: 048
     Dates: start: 20031021
  2. ACCUTANE [Suspect]
     Route: 048
     Dates: start: 20050101, end: 20050601
  3. ACCUTANE [Suspect]
     Route: 048
     Dates: start: 20040301, end: 20040901

REACTIONS (11)
  - IRRITABLE BOWEL SYNDROME [None]
  - NASAL DRYNESS [None]
  - CROHN'S DISEASE [None]
  - LIP DRY [None]
  - HAEMORRHOIDS [None]
  - GASTROINTESTINAL INJURY [None]
  - DEPRESSION [None]
  - COLITIS ULCERATIVE [None]
  - DRY SKIN [None]
  - ARTHRALGIA [None]
  - BACK PAIN [None]
